FAERS Safety Report 10026042 (Version 1)
Quarter: 2014Q1

REPORT INFORMATION
  Report Type: Spontaneous
  Country: BR (occurrence: BR)
  Receive Date: 20140320
  Receipt Date: 20140320
  Transmission Date: 20141002
  Serious: Yes (Other)
  Sender: FDA-Public Use
  Company Number: BR-ASTRAZENECA-2014SE17847

PATIENT
  Age: 63 Year
  Sex: Female
  Weight: 56 kg

DRUGS (3)
  1. CRESTOR [Suspect]
     Indication: BLOOD CHOLESTEROL INCREASED
     Route: 048
     Dates: start: 2008, end: 201403
  2. SYNTHROID 50MCG [Concomitant]
     Indication: THYROID DISORDER
     Route: 048
     Dates: start: 2005
  3. DIOSMIN [Concomitant]
     Indication: VARICOSE VEIN
     Dosage: DAILY
     Route: 048
     Dates: start: 2012

REACTIONS (2)
  - Varicose vein [Not Recovered/Not Resolved]
  - Carotid arteriosclerosis [Unknown]
